FAERS Safety Report 16332512 (Version 1)
Quarter: 2019Q2

REPORT INFORMATION
  Report Type: Spontaneous
  Country: US (occurrence: US)
  Receive Date: 20190520
  Receipt Date: 20190520
  Transmission Date: 20190711
  Serious: No
  Sender: FDA-Public Use
  Company Number: US-PFIZER INC-2019209551

PATIENT

DRUGS (1)
  1. PREMPRO [Suspect]
     Active Substance: ESTROGENS, CONJUGATED\MEDROXYPROGESTERONE ACETATE
     Dosage: UNK ([ESTROGENS CONJUGATED: 0.3 MG]/[MEDROXYPROGESTERONE ACETATE: 1.5 MG])/(TAKING PREMPRO FOR OVER)

REACTIONS (6)
  - Vulvovaginal discomfort [Unknown]
  - Hot flush [Unknown]
  - Insomnia [Unknown]
  - Vulvovaginal dryness [Unknown]
  - Alopecia [Unknown]
  - Depression [Unknown]
